FAERS Safety Report 9224449 (Version 3)
Quarter: 2013Q3

REPORT INFORMATION
  Report Type: Spontaneous
  Country: ES (occurrence: ES)
  Receive Date: 20130411
  Receipt Date: 20130710
  Transmission Date: 20140515
  Serious: Yes (Other)
  Sender: FDA-Public Use
  Company Number: ES-JNJFOC-20130402772

PATIENT
  Age: 86 Year
  Sex: Male
  Weight: 60 kg

DRUGS (2)
  1. XARELTO [Suspect]
     Indication: ATRIAL FIBRILLATION
     Route: 048
     Dates: start: 201303, end: 201304
  2. XARELTO [Suspect]
     Indication: CEREBROVASCULAR ACCIDENT PROPHYLAXIS
     Route: 048
     Dates: start: 201303, end: 201304

REACTIONS (3)
  - Vasculitis [Recovered/Resolved]
  - Rash [Recovered/Resolved]
  - Pruritus [Unknown]
